FAERS Safety Report 12683932 (Version 1)
Quarter: 2016Q3

REPORT INFORMATION
  Report Type: Spontaneous
  Country: US (occurrence: US)
  Receive Date: 20160825
  Receipt Date: 20160825
  Transmission Date: 20161109
  Serious: Yes (Other)
  Sender: FDA-Public Use
  Company Number: US-PFIZER INC-2016395022

PATIENT
  Sex: Male

DRUGS (12)
  1. LASIX [Concomitant]
     Active Substance: FUROSEMIDE
     Indication: SWELLING
     Dosage: 20 MG, DAILY
     Route: 048
  2. AXID [Concomitant]
     Active Substance: NIZATIDINE
     Indication: GASTROOESOPHAGEAL REFLUX DISEASE
     Dosage: 300MG CAPSULES, 4 CAPSULES A DAY FOR A TOTAL OF 1200MG DAILY
     Dates: start: 1992, end: 2009
  3. SYNTHROID [Concomitant]
     Active Substance: LEVOTHYROXINE SODIUM
     Indication: BLOOD THYROID STIMULATING HORMONE
     Dosage: 50MCG TABLET BY MOUTH DAILY
     Route: 048
  4. PREVACID [Concomitant]
     Active Substance: LANSOPRAZOLE
     Indication: GASTROOESOPHAGEAL REFLUX DISEASE
     Dosage: 15MG CAPSULE BY MOUTH TWICE DAILY
     Route: 048
     Dates: start: 2009
  5. BUSPAR [Concomitant]
     Active Substance: BUSPIRONE HYDROCHLORIDE
     Indication: NEUROTRANSMITTER LEVEL ALTERED
     Dosage: 5MG TABLET BY MOUTH THREE TIMES DAILY
     Route: 048
     Dates: start: 1995
  6. ZANTAC [Concomitant]
     Active Substance: RANITIDINE HYDROCHLORIDE
     Indication: GASTROOESOPHAGEAL REFLUX DISEASE
     Dosage: 150MG TABLET BY MOUTH THREE TIMES DAILY
     Route: 048
     Dates: start: 2009
  7. AMLODIPINE BESILATE [Suspect]
     Active Substance: AMLODIPINE BESYLATE
     Indication: ANGINA PECTORIS
     Dosage: 2.5 MG, 1X/DAY
     Route: 048
  8. PREVIDENT [Concomitant]
     Active Substance: SODIUM FLUORIDE
     Indication: GINGIVAL ATROPHY
     Dosage: 1 GRAM ON TOOTHBRUSH TWICE DAILY
     Dates: start: 1971
  9. QUESTRAN [Concomitant]
     Active Substance: CHOLESTYRAMINE
     Indication: BILE OUTPUT ABNORMAL
     Dosage: MIXES PACKETS OF POWDER IN WATER AND TOOK 3 TO 4 TIMES DAILY BEFORE MEALS
     Dates: start: 1990, end: 1993
  10. QUINAPRIL. [Concomitant]
     Active Substance: QUINAPRIL
     Dosage: 5 MG, UNK
  11. KLONOPIN [Concomitant]
     Active Substance: CLONAZEPAM
     Indication: MAJOR DEPRESSION
     Dosage: 5-6MG A DAY
     Route: 048
     Dates: start: 1993
  12. DEPAKOTE [Concomitant]
     Active Substance: DIVALPROEX SODIUM
     Indication: BIPOLAR DISORDER
     Dosage: 1000MG TABLET BY MOUTH DAILY
     Route: 048
     Dates: start: 1995, end: 2013

REACTIONS (2)
  - Muscle spasms [Unknown]
  - Crohn^s disease [Unknown]

NARRATIVE: CASE EVENT DATE: 201505
